FAERS Safety Report 20347723 (Version 2)
Quarter: 2022Q1

REPORT INFORMATION
  Report Type: Spontaneous
  Country: US (occurrence: US)
  Receive Date: 20220118
  Receipt Date: 20220125
  Transmission Date: 20220423
  Serious: Yes (Hospitalization, Other)
  Sender: FDA-Public Use
  Company Number: US-ALKERMES INC.-ALK-2022-000125

PATIENT
  Sex: Female

DRUGS (2)
  1. VIVITROL [Suspect]
     Active Substance: NALTREXONE
     Indication: Alcoholism
     Dosage: 380 MILLIGRAM, QMO
     Route: 030
     Dates: start: 20211222, end: 20211222
  2. VIVITROL [Suspect]
     Active Substance: NALTREXONE
     Indication: Drug dependence

REACTIONS (4)
  - Surgery [Recovering/Resolving]
  - Pain [Recovering/Resolving]
  - Psychological trauma [Recovering/Resolving]
  - Pregnancy [Recovered/Resolved]

NARRATIVE: CASE EVENT DATE: 20210101
